FAERS Safety Report 14853401 (Version 1)
Quarter: 2018Q2

REPORT INFORMATION
  Report Type: Spontaneous
  Country: US (occurrence: US)
  Receive Date: 20180419
  Receipt Date: 20180419
  Transmission Date: 20180711
  Serious: Yes (Hospitalization)
  Sender: FDA-Public Use
  Company Number: None

PATIENT
  Age: 61 Year
  Sex: Female
  Weight: 81 kg

DRUGS (13)
  1. HYALGAN [Concomitant]
     Active Substance: HYALURONATE SODIUM
  2. OXYCODONE [Concomitant]
     Active Substance: OXYCODONE
  3. OXYCONTIN [Concomitant]
     Active Substance: OXYCODONE HYDROCHLORIDE
  4. FISH OIL [Concomitant]
     Active Substance: FISH OIL
  5. PAXIL [Concomitant]
     Active Substance: PAROXETINE HYDROCHLORIDE
  6. MULTI-VITAMINS [Concomitant]
  7. EXTRA CALCIUM AND VIT D [Concomitant]
  8. OSTEO-BIFLEX [Concomitant]
  9. EXTRA MAGNESIUM [Concomitant]
  10. MOBIC [Concomitant]
     Active Substance: MELOXICAM
  11. AFINITOR [Suspect]
     Active Substance: EVEROLIMUS
     Indication: BREAST CANCER METASTATIC
     Dosage: ?          QUANTITY:1 DF DOSAGE FORM;?
     Route: 048
     Dates: start: 20180220, end: 20180416
  12. FASLODEX [Concomitant]
     Active Substance: FULVESTRANT
  13. ATIVAN [Concomitant]
     Active Substance: LORAZEPAM

REACTIONS (7)
  - Thirst [None]
  - Heart rate increased [None]
  - White blood cell disorder [None]
  - Decreased appetite [None]
  - Dyspnoea [None]
  - Abdominal pain [None]
  - Pyrexia [None]

NARRATIVE: CASE EVENT DATE: 20180224
